FAERS Safety Report 11141883 (Version 1)
Quarter: 2015Q2

REPORT INFORMATION
  Report Type: Spontaneous
  Country: US (occurrence: US)
  Receive Date: 20150527
  Receipt Date: 20150527
  Transmission Date: 20150821
  Serious: Yes (Hospitalization, Other)
  Sender: FDA-Public Use
  Company Number: US-GLAXOSMITHKLINE-US2015GSK070609

PATIENT
  Age: 72 Year
  Sex: Female

DRUGS (2)
  1. REVLIMID [Concomitant]
     Active Substance: LENALIDOMIDE
  2. PROMACTA [Suspect]
     Active Substance: ELTROMBOPAG OLAMINE
     Indication: ACUTE MYELOID LEUKAEMIA
     Dosage: 75 MG, QD
     Route: 048
     Dates: start: 20140606

REACTIONS (2)
  - Clostridium difficile infection [Unknown]
  - Pneumonia klebsiella [Unknown]

NARRATIVE: CASE EVENT DATE: 20150505
